FAERS Safety Report 5587957-0 (Version None)
Quarter: 2008Q1

REPORT INFORMATION
  Report Type: 
  Country: None (occurrence: None)
  Receive Date: 20080111
  Receipt Date: 20080103
  Transmission Date: 20080703
  Serious: Yes (Death)
  Sender: FDA-Public Use
  Company Number: US-JNJFOC-20070905663

PATIENT
  Sex: Female
  Weight: 62.6 kg

DRUGS (4)
  1. ORTHO EVRA [Suspect]
     Indication: CONTRACEPTION
     Route: 062
     Dates: start: 20040910, end: 20041004
  2. TENORMIN [Concomitant]
  3. ZOCOR [Concomitant]
  4. LAC-HYDRIN [Concomitant]

REACTIONS (1)
  - INTRACRANIAL VENOUS SINUS THROMBOSIS [None]
